FAERS Safety Report 18677701 (Version 1)
Quarter: 2020Q4

REPORT INFORMATION
  Report Type: Spontaneous
  Country: US (occurrence: US)
  Receive Date: 20201229
  Receipt Date: 20201229
  Transmission Date: 20210114
  Serious: Yes (Death, Other)
  Sender: FDA-Public Use
  Company Number: US-AMGEN-USASP2020208758

PATIENT

DRUGS (1)
  1. NEUPOGEN [Suspect]
     Active Substance: FILGRASTIM
     Indication: AMYOTROPHIC LATERAL SCLEROSIS
     Dosage: 5 MICROGRAM/KILOGRAM, BID
     Route: 058

REACTIONS (8)
  - Pyrexia [Unknown]
  - Myalgia [Unknown]
  - Fatigue [Unknown]
  - Alpha tumour necrosis factor increased [Unknown]
  - Arthralgia [Unknown]
  - Hypertension [Recovered/Resolved]
  - Amyotrophic lateral sclerosis [Fatal]
  - Malaise [Unknown]
